FAERS Safety Report 15468785 (Version 6)
Quarter: 2020Q4

REPORT INFORMATION
  Report Type: Report from Study
  Country: CZ (occurrence: CZ)
  Receive Date: 20181005
  Receipt Date: 20201006
  Transmission Date: 20210113
  Serious: Yes (Hospitalization)
  Sender: FDA-Public Use
  Company Number: CZ-EISAI MEDICAL RESEARCH-EC-2018-045944

PATIENT
  Age: 51 Year
  Sex: Male
  Weight: 80 kg

DRUGS (9)
  1. LENVATINIB [Suspect]
     Active Substance: LENVATINIB
     Indication: CLEAR CELL RENAL CELL CARCINOMA
     Route: 048
     Dates: start: 20180424, end: 20181002
  2. CALCIUM COLECALCIFEROL [Concomitant]
  3. LIPANTHYL [Concomitant]
     Active Substance: FENOFIBRATE
  4. PEMBROLIZUMAB. [Suspect]
     Active Substance: PEMBROLIZUMAB
     Indication: CLEAR CELL RENAL CELL CARCINOMA
     Route: 041
     Dates: start: 20180424, end: 20180920
  5. LENVATINIB [Suspect]
     Active Substance: LENVATINIB
     Route: 048
     Dates: start: 20181017
  6. FRAXIPARINE [Concomitant]
     Active Substance: NADROPARIN CALCIUM
  7. PARALEN [Concomitant]
  8. PURINOL [Concomitant]
  9. ATORIS [Concomitant]
     Active Substance: ATORVASTATIN CALCIUM

REACTIONS (1)
  - Renal failure [Recovered/Resolved]

NARRATIVE: CASE EVENT DATE: 20181002
